FAERS Safety Report 5130061-6 (Version None)
Quarter: 2006Q4

REPORT INFORMATION
  Report Type: 
  Country: None (occurrence: None)
  Receive Date: 20061018
  Receipt Date: 20061009
  Transmission Date: 20070319
  Serious: Yes (Death, Hospitalization)
  Sender: FDA-Public Use
  Company Number: US-ABBOTT-06P-163-0346361-01

PATIENT
  Sex: Female
  Weight: 90.9 kg

DRUGS (14)
  1. HUMIRA [Suspect]
     Indication: RHEUMATOID ARTHRITIS
     Route: 058
     Dates: start: 20010215, end: 20060901
  2. MULTIVITAMIN [Concomitant]
     Indication: ROUTINE HEALTH MAINTENANCE
     Route: 048
     Dates: start: 20000501
  3. ESOMEPRAZOLE MAGNESIUM [Concomitant]
     Indication: GASTROOESOPHAGEAL REFLUX DISEASE
     Route: 048
     Dates: start: 20020206
  4. SANAFLEX [Concomitant]
     Indication: RESTLESSNESS
     Route: 048
     Dates: start: 20020412
  5. ATORVASTATIN CALCIUM [Concomitant]
     Indication: HYPERLIPIDAEMIA
     Route: 048
     Dates: start: 20030506
  6. ALPRAZOLAM [Concomitant]
     Indication: DEPRESSION
     Route: 048
     Dates: start: 20031004
  7. LEXAPRO [Concomitant]
     Indication: DEPRESSION
     Route: 048
     Dates: start: 20050609
  8. FUROSEMIDE [Concomitant]
     Indication: HYPERTENSION
     Route: 048
     Dates: start: 20030110, end: 20060508
  9. FUROSEMIDE [Concomitant]
     Route: 048
     Dates: start: 20060509
  10. POTASSIUM [Concomitant]
     Indication: HYPERTENSION
     Route: 048
     Dates: start: 20041004, end: 20060508
  11. POTASSIUM [Concomitant]
     Route: 048
     Dates: start: 20060509
  12. HYZAAR [Concomitant]
     Indication: HYPERTENSION
     Dosage: 100-25 MG
     Route: 048
     Dates: start: 20060509
  13. LYRCA [Concomitant]
     Indication: PAIN
     Route: 048
     Dates: start: 20060609
  14. PREDNISONE TAB [Concomitant]
     Indication: RHEUMATOID ARTHRITIS
     Route: 048
     Dates: start: 20040220

REACTIONS (1)
  - ABDOMINAL OPERATION [None]
